FAERS Safety Report 23461770 (Version 1)
Quarter: 2024Q1

REPORT INFORMATION
  Report Type: Spontaneous
  Country: IN (occurrence: IN)
  Receive Date: 20240131
  Receipt Date: 20240131
  Transmission Date: 20240410
  Serious: Yes (Other)
  Sender: FDA-Public Use
  Company Number: IN-BAUSCHBL-2024BNL000946

PATIENT
  Age: 34 Year
  Sex: Female

DRUGS (3)
  1. PREDNISOLONE [Suspect]
     Active Substance: PREDNISOLONE
     Indication: Type 2 lepra reaction
     Route: 065
  2. OFLOXACIN [Concomitant]
     Active Substance: OFLOXACIN
     Indication: Lepromatous leprosy
  3. THALIDOMIDE [Concomitant]
     Active Substance: THALIDOMIDE
     Indication: Type 2 lepra reaction

REACTIONS (2)
  - Rhinocerebral mucormycosis [Recovering/Resolving]
  - Therapy non-responder [Unknown]
